FAERS Safety Report 13065566 (Version 2)
Quarter: 2017Q4

REPORT INFORMATION
  Report Type: Spontaneous
  Country: US (occurrence: US)
  Receive Date: 20161227
  Receipt Date: 20171030
  Transmission Date: 20180320
  Serious: Yes (Other)
  Sender: FDA-Public Use
  Company Number: US-TEVA-723135ACC

PATIENT
  Sex: Female

DRUGS (8)
  1. COPAXONE [Suspect]
     Active Substance: GLATIRAMER ACETATE
     Route: 058
     Dates: start: 20150722
  2. WELLBUTRIN [Concomitant]
     Active Substance: BUPROPION HYDROCHLORIDE
  3. VITAMIN B COMPLEX [Concomitant]
     Active Substance: CYANOCOBALAMIN\DEXPANTHENOL\NIACINAMIDE\PYRIDOXINE HYDROCHLORIDE\RIBOFLAVIN 5^-PHOSPHATE SODIUM\THIAMINE HYDROCHLORIDE\VITAMIN B COMPLEX
  4. COPAXONE [Suspect]
     Active Substance: GLATIRAMER ACETATE
     Indication: MULTIPLE SCLEROSIS
     Route: 058
     Dates: start: 20150206
  5. ADVIL [Concomitant]
     Active Substance: IBUPROFEN
  6. ALPRAZOLAM. [Concomitant]
     Active Substance: ALPRAZOLAM
  7. RITALIN [Concomitant]
     Active Substance: METHYLPHENIDATE HYDROCHLORIDE
  8. BUPROPION. [Concomitant]
     Active Substance: BUPROPION

REACTIONS (6)
  - Mobility decreased [Not Recovered/Not Resolved]
  - Pain in extremity [Not Recovered/Not Resolved]
  - Depression [Not Recovered/Not Resolved]
  - Asthenia [Not Recovered/Not Resolved]
  - Fatigue [Not Recovered/Not Resolved]
  - Hemiparesis [Not Recovered/Not Resolved]
